FAERS Safety Report 8587276-4 (Version None)
Quarter: 2012Q3

REPORT INFORMATION
  Report Type: 
  Country: None (occurrence: None)
  Receive Date: 20120810
  Receipt Date: 20120307
  Transmission Date: 20120928
  Serious: No
  Sender: FDA-Public Use
  Company Number: US-ASTRAZENECA-2012SE11806

PATIENT
  Age: 70 Year
  Sex: Female

DRUGS (3)
  1. ARIMIDEX [Suspect]
     Indication: BREAST CANCER
     Route: 048
     Dates: start: 20080101
  2. ARIMIDEX [Suspect]
     Route: 048
     Dates: start: 20100901
  3. ARIMIDEX [Suspect]
     Route: 048
     Dates: start: 20111101

REACTIONS (4)
  - URINARY TRACT DISORDER [None]
  - GAIT DISTURBANCE [None]
  - DRUG HYPERSENSITIVITY [None]
  - MUSCULAR WEAKNESS [None]
